FAERS Safety Report 7069938-3 (Version None)
Quarter: 2010Q4

REPORT INFORMATION
  Report Type: 
  Country: None (occurrence: None)
  Receive Date: 20101028
  Receipt Date: 20100805
  Transmission Date: 20110411
  Serious: No
  Sender: FDA-Public Use
  Company Number: US-WYE-H16758010

PATIENT
  Sex: Male

DRUGS (2)
  1. PROTONIX [Suspect]
     Dates: start: 20000101
  2. LEVOTHROID [Concomitant]

REACTIONS (5)
  - ASTHENIA [None]
  - CHEST DISCOMFORT [None]
  - DYSPNOEA [None]
  - MUSCLE TIGHTNESS [None]
  - PRURITUS [None]
